FAERS Safety Report 6253745-5 (Version None)
Quarter: 2009Q2

REPORT INFORMATION
  Report Type: 
  Country: None (occurrence: None)
  Receive Date: 20090630
  Receipt Date: 20090615
  Transmission Date: 20091009
  Serious: Yes (Hospitalization)
  Sender: FDA-Public Use
  Company Number: 8047911

PATIENT
  Age: 47 Year
  Sex: Female
  Weight: 79.8 kg

DRUGS (7)
  1. CDP870 [Suspect]
     Indication: RHEUMATOID ARTHRITIS
     Dosage: 200 MG 1/2W SC
     Route: 058
     Dates: start: 20081125, end: 20090528
  2. METHOTREXATE [Concomitant]
  3. FOLIC ACID [Concomitant]
  4. PRILOSEC [Concomitant]
  5. TYLENOL PM [Concomitant]
  6. MIRALAX [Concomitant]
  7. ADIPEX [Concomitant]

REACTIONS (1)
  - FURUNCLE [None]
